FAERS Safety Report 18876205 (Version 2)
Quarter: 2021Q1

REPORT INFORMATION
  Report Type: Spontaneous
  Country: US (occurrence: US)
  Receive Date: 20210211
  Receipt Date: 20210326
  Transmission Date: 20210420
  Serious: No
  Sender: FDA-Public Use
  Company Number: US-BAUSCH-BL-2021-000865

PATIENT
  Age: 70 Year
  Sex: Female

DRUGS (1)
  1. LACRISERT [Suspect]
     Active Substance: HYDROXYPROPYL CELLULOSE
     Indication: DRY EYE
     Dosage: STARTED ABOUT 1.5 WEEKS AGO
     Route: 047
     Dates: start: 202012

REACTIONS (5)
  - Dry eye [Unknown]
  - Eye inflammation [Unknown]
  - Drug ineffective [Unknown]
  - Eye irritation [Unknown]
  - Product solubility abnormal [Unknown]
